FAERS Safety Report 4636503-4 (Version None)
Quarter: 2005Q2

REPORT INFORMATION
  Report Type: 
  Country: None (occurrence: None)
  Receive Date: 20050415
  Receipt Date: 20050406
  Transmission Date: 20051028
  Serious: Yes (Hospitalization)
  Sender: FDA-Public Use
  Company Number: US-BRISTOL-MYERS SQUIBB COMPANY-12924023

PATIENT
  Age: 60 Year
  Sex: Male

DRUGS (17)
  1. CISPLATIN [Suspect]
  2. PRAVACHOL [Concomitant]
     Indication: PROPHYLAXIS
     Route: 048
     Dates: start: 20020101
  3. AMBIEN [Concomitant]
     Indication: INSOMNIA
     Route: 048
     Dates: start: 20010101
  4. TOPROL-XL [Concomitant]
  5. NEXIUM [Concomitant]
     Indication: GASTROOESOPHAGEAL REFLUX DISEASE
     Route: 048
     Dates: start: 20010101
  6. ARANESP [Concomitant]
  7. PLAVIX [Concomitant]
     Indication: PROPHYLAXIS
     Route: 048
     Dates: start: 20020101
  8. DILAUDID [Concomitant]
  9. IMODIUM [Concomitant]
  10. DIFLUCAN [Concomitant]
  11. LEVAQUIN [Concomitant]
  12. CARAFATE [Concomitant]
  13. ELAVIL [Concomitant]
  14. XANAX [Concomitant]
  15. LORCET-HD [Concomitant]
  16. DIFLUCAN [Concomitant]
  17. METOPROLOL SUCCINATE [Concomitant]
     Indication: PROPHYLAXIS
     Route: 048
     Dates: start: 20020101

REACTIONS (15)
  - ANAEMIA [None]
  - ANOREXIA [None]
  - DEHYDRATION [None]
  - DIARRHOEA [None]
  - FATIGUE [None]
  - LEUKOPENIA [None]
  - MYALGIA [None]
  - NAUSEA [None]
  - NEUTROPENIA [None]
  - ODYNOPHAGIA [None]
  - OESOPHAGITIS [None]
  - RASH [None]
  - STOMATITIS [None]
  - VOMITING [None]
  - WEIGHT DECREASED [None]
